FAERS Safety Report 22257380 (Version 1)
Quarter: 2023Q2

REPORT INFORMATION
  Report Type: Other
  Country: GB (occurrence: GB)
  Receive Date: 20230427
  Receipt Date: 20230427
  Transmission Date: 20230721
  Serious: Yes (Hospitalization, Other)
  Sender: FDA-Public Use
  Company Number: GB-CELLTRION INC.-2023GB008621

PATIENT

DRUGS (18)
  1. RITUXIMAB [Suspect]
     Active Substance: RITUXIMAB
     Indication: Diffuse large B-cell lymphoma
     Dosage: R-ICE
     Dates: start: 20221121
  2. RITUXIMAB [Suspect]
     Active Substance: RITUXIMAB
     Dosage: R-ICE
     Dates: start: 20221121
  3. RITUXIMAB [Suspect]
     Active Substance: RITUXIMAB
     Dosage: R-ICE
     Dates: start: 20221121
  4. RITUXIMAB [Suspect]
     Active Substance: RITUXIMAB
     Dosage: R-CHOP X4
  5. RITUXIMAB [Suspect]
     Active Substance: RITUXIMAB
     Dosage: R-CHOP X4
  6. RITUXIMAB [Suspect]
     Active Substance: RITUXIMAB
     Dosage: R-CHOP X4
  7. RITUXIMAB [Suspect]
     Active Substance: RITUXIMAB
     Dosage: R-POLA
     Dates: start: 20230201
  8. RITUXIMAB [Suspect]
     Active Substance: RITUXIMAB
     Dosage: R-POLA
     Dates: start: 20230201
  9. RITUXIMAB [Suspect]
     Active Substance: RITUXIMAB
     Dosage: R-POLA
     Dates: start: 20230201
  10. BENDAMUSTINE [Suspect]
     Active Substance: BENDAMUSTINE
     Indication: Diffuse large B-cell lymphoma
     Dosage: R-POLA
     Dates: start: 20230201
  11. CARBOPLATIN [Suspect]
     Active Substance: CARBOPLATIN
     Indication: Diffuse large B-cell lymphoma
     Dosage: R-ICE
     Dates: start: 20221121
  12. CYCLOPHOSPHAMIDE [Suspect]
     Active Substance: CYCLOPHOSPHAMIDE
     Indication: Diffuse large B-cell lymphoma
     Dosage: R-CHOP X4
  13. DOXORUBICIN [Suspect]
     Active Substance: DOXORUBICIN
     Indication: Diffuse large B-cell lymphoma
     Dosage: R-CHOP X4
  14. ETOPOSIDE [Suspect]
     Active Substance: ETOPOSIDE
     Indication: Diffuse large B-cell lymphoma
     Dosage: R-ICE
     Dates: start: 20221121
  15. IFOSFAMIDE [Suspect]
     Active Substance: IFOSFAMIDE
     Indication: Diffuse large B-cell lymphoma
     Dosage: R-ICE
     Dates: start: 20221121
  16. POLATUZUMAB VEDOTIN [Suspect]
     Active Substance: POLATUZUMAB VEDOTIN
     Indication: Diffuse large B-cell lymphoma
     Dosage: R-POLA
     Dates: start: 20230201
  17. PREDNISONE [Suspect]
     Active Substance: PREDNISONE
     Indication: Diffuse large B-cell lymphoma
     Dosage: R-CHOP X4
  18. PREDNISONE [Suspect]
     Active Substance: PREDNISONE
     Dosage: R-CHOP X4

REACTIONS (3)
  - Dyspnoea [Unknown]
  - Disease progression [Unknown]
  - Drug ineffective [Unknown]

NARRATIVE: CASE EVENT DATE: 20230227
